FAERS Safety Report 9098857 (Version 1)
Quarter: 2013Q1

REPORT INFORMATION
  Report Type: Report from Study
  Country: GB (occurrence: GB)
  Receive Date: 20130213
  Receipt Date: 20130213
  Transmission Date: 20140127
  Serious: Yes (Hospitalization)
  Sender: FDA-Public Use
  Company Number: GB-PFIZER INC-2013053153

PATIENT
  Sex: Male

DRUGS (3)
  1. PHENYTOIN [Suspect]
     Dosage: UNK
  2. LAMOTRIGINE [Suspect]
     Dosage: UNK
  3. CHLORAMPHENICOL [Suspect]

REACTIONS (1)
  - Aplasia pure red cell [Recovered/Resolved]
